FAERS Safety Report 21365464 (Version 1)
Quarter: 2022Q3

REPORT INFORMATION
  Report Type: Spontaneous
  Country: IN (occurrence: IN)
  Receive Date: 20220922
  Receipt Date: 20220922
  Transmission Date: 20221026
  Serious: Yes (Hospitalization, Other)
  Sender: FDA-Public Use
  Company Number: IN-AMGEN-INDSP2022159080

PATIENT
  Age: 24 Year
  Sex: Female

DRUGS (2)
  1. ROMIPLOSTIM [Suspect]
     Active Substance: ROMIPLOSTIM
     Indication: Immune thrombocytopenia
     Dosage: 5 MICROGRAM/KILOGRAM
     Route: 058
  2. PREDNISOLONE [Concomitant]
     Active Substance: PREDNISOLONE
     Dosage: 50 MILLIGRAM, QD
     Route: 065

REACTIONS (6)
  - Procedural haemorrhage [Unknown]
  - Procedural pain [Unknown]
  - Premature delivery [Unknown]
  - Caesarean section [Unknown]
  - Platelet count decreased [Recovered/Resolved]
  - Maternal exposure during pregnancy [Unknown]
